FAERS Safety Report 10234845 (Version 1)
Quarter: 2014Q1

REPORT INFORMATION
  Report Type: Spontaneous
  Country: US (occurrence: None)
  Receive Date: 20140306
  Receipt Date: 20140306
  Transmission Date: 20141002
  Serious: Yes (Other)
  Sender: FDA-Public Use
  Company Number: 163-21880-13044694

PATIENT
  Age: 79 Year
  Sex: Male

DRUGS (3)
  1. REVLIMID (LENALIDOMIDE) (10 MILLIGRAM, CAPSULES) [Suspect]
     Indication: PLASMA CELL MYELOMA
     Route: 048
     Dates: start: 201212
  2. MELPHALAN (MELPHALAN) [Concomitant]
  3. PREDNISOLONE (PREDNISOLONE) [Concomitant]

REACTIONS (2)
  - Platelet count decreased [None]
  - Full blood count decreased [None]
